FAERS Safety Report 9022074 (Version 1)
Quarter: 2013Q1

REPORT INFORMATION
  Report Type: Spontaneous
  Country: US (occurrence: US)
  Receive Date: 20130118
  Receipt Date: 20130118
  Transmission Date: 20140127
  Serious: Yes (Other)
  Sender: FDA-Public Use
  Company Number: US-GLAXOSMITHKLINE-A1008727A

PATIENT
  Sex: Female

DRUGS (1)
  1. FLUTICASONE [Suspect]
     Indication: PRODUCT USED FOR UNKNOWN INDICATION
     Route: 065

REACTIONS (1)
  - Adrenal insufficiency [Not Recovered/Not Resolved]
